FAERS Safety Report 10154281 (Version 1)
Quarter: 2014Q2

REPORT INFORMATION
  Report Type: Spontaneous
  Country: US (occurrence: None)
  Receive Date: 20140505
  Receipt Date: 20140505
  Transmission Date: 20141212
  Serious: Yes (Disabling)
  Sender: FDA-Public Use
  Company Number: None

PATIENT
  Age: 60 Year
  Sex: Male
  Weight: 77.57 kg

DRUGS (1)
  1. OMEPRAZOLE [Suspect]
     Indication: GASTROOESOPHAGEAL REFLUX DISEASE
     Dosage: 1 PILL PER DAY
     Route: 048
     Dates: start: 20140501, end: 20140502

REACTIONS (5)
  - Drug ineffective [None]
  - Abdominal pain [None]
  - Dysgeusia [None]
  - Throat irritation [None]
  - Sinus congestion [None]
